FAERS Safety Report 8240036-6 (Version None)
Quarter: 2012Q1

REPORT INFORMATION
  Report Type: 
  Country: None (occurrence: None)
  Receive Date: 20120328
  Receipt Date: 20120326
  Transmission Date: 20120608
  Serious: No
  Sender: FDA-Public Use
  Company Number: US-BAYER-2012-029913

PATIENT
  Age: 58 Year
  Sex: Female

DRUGS (2)
  1. SYNTHROID [Concomitant]
  2. AVELOX [Suspect]
     Indication: URINARY TRACT INFECTION
     Dosage: 400 MG, QD
     Route: 048

REACTIONS (4)
  - TENDONITIS [None]
  - PAIN IN EXTREMITY [None]
  - HYPOAESTHESIA [None]
  - MUSCULOSKELETAL PAIN [None]
